FAERS Safety Report 5222372-0 (Version None)
Quarter: 2007Q1

REPORT INFORMATION
  Report Type: 
  Country: None (occurrence: None)
  Receive Date: 20070129
  Receipt Date: 20070125
  Transmission Date: 20070707
  Serious: Yes (Other)
  Sender: FDA-Public Use
  Company Number: 200710278EU

PATIENT
  Age: 30 Year
  Sex: Female

DRUGS (6)
  1. NICODERM [Suspect]
     Dosage: 21MG PER DAY
     Route: 062
     Dates: start: 20070107
  2. SEROQUEL [Concomitant]
  3. EFFEXOR [Concomitant]
     Indication: DEPRESSION
  4. RIVOTRIL [Concomitant]
     Dosage: 1MG THREE TIMES PER DAY
  5. MONOCOR [Concomitant]
  6. MONOPRIL [Concomitant]
     Indication: HYPERTENSION

REACTIONS (6)
  - DRUG INEFFECTIVE [None]
  - HYPERHIDROSIS [None]
  - HYPERTENSION [None]
  - NICOTINE DEPENDENCE [None]
  - SYNCOPE [None]
  - TREMOR [None]
